FAERS Safety Report 8010922-0 (Version None)
Quarter: 2011Q4

REPORT INFORMATION
  Report Type: 
  Country: None (occurrence: None)
  Receive Date: 20111222
  Receipt Date: 20111214
  Transmission Date: 20120403
  Serious: Yes (Congenital Anomaly)
  Sender: FDA-Public Use
  Company Number: 2011MA017803

PATIENT
  Age: 5 Year
  Sex: Male

DRUGS (2)
  1. CITALOPRAM HYDROBROMIDE [Suspect]
     Indication: FOETAL EXPOSURE DURING PREGNANCY
     Dosage: 40 MG;TRPL
     Route: 064
  2. FLUOXETINE [Suspect]
     Indication: FOETAL EXPOSURE DURING PREGNANCY
     Dosage: 20 MG;TRPL
     Route: 064
     Dates: start: 20051101, end: 20060428

REACTIONS (2)
  - FOETAL EXPOSURE DURING PREGNANCY [None]
  - CONGENITAL VESICOURETERIC REFLUX [None]
